FAERS Safety Report 23242553 (Version 1)
Quarter: 2023Q4

REPORT INFORMATION
  Report Type: Spontaneous
  Country: PH (occurrence: PH)
  Receive Date: 20231129
  Receipt Date: 20231129
  Transmission Date: 20240109
  Serious: Yes (Death)
  Sender: FDA-Public Use
  Company Number: PH-AMGEN-PHLSP2023209251

PATIENT
  Age: 71 Year
  Sex: Male

DRUGS (2)
  1. XGEVA [Suspect]
     Active Substance: DENOSUMAB
     Indication: Thyroid cancer
     Dosage: 120 MILLIGRAM
     Route: 058
  2. LENVATINIB [Concomitant]
     Active Substance: LENVATINIB
     Indication: Metastases to central nervous system
     Dosage: UNK
     Route: 065

REACTIONS (2)
  - Cardiac death [Fatal]
  - General physical health deterioration [Unknown]
